FAERS Safety Report 9574737 (Version 1)
Quarter: 2013Q4

REPORT INFORMATION
  Report Type: Report from Study
  Country: MX (occurrence: MX)
  Receive Date: 20131001
  Receipt Date: 20131001
  Transmission Date: 20140711
  Serious: Yes (Other)
  Sender: FDA-Public Use
  Company Number: PHHY2013MX109441

PATIENT
  Age: 75 Year
  Sex: Female

DRUGS (3)
  1. CO-DIOVAN [Suspect]
     Indication: HYPERTENSION
     Dosage: 1 DF (320/25 MG), DAILY
     Route: 048
     Dates: end: 201303
  2. SELOPRES ZOK [Concomitant]
     Dosage: 1 UKN, DAILY
     Dates: start: 2012
  3. ASPIRINA [Concomitant]
     Indication: CARDIAC DISORDER
     Dosage: 1 UKN, DAILY
     Dates: start: 2012

REACTIONS (4)
  - Cerebral infarction [Recovered/Resolved]
  - Blood cholesterol increased [Not Recovered/Not Resolved]
  - Vein disorder [Unknown]
  - Pain in extremity [Not Recovered/Not Resolved]
